FAERS Safety Report 11560980 (Version 1)
Quarter: 2015Q3

REPORT INFORMATION
  Report Type: Spontaneous
  Country: US (occurrence: US)
  Receive Date: 20150916
  Receipt Date: 20150916
  Transmission Date: 20151125
  Serious: No
  Sender: FDA-Public Use
  Company Number: US-ELI_LILLY_AND_COMPANY-US200810003466

PATIENT
  Age: 60 Year
  Sex: Female

DRUGS (7)
  1. DOXEPIN [Concomitant]
     Active Substance: DOXEPIN
     Dosage: UNK, EACH EVENING
  2. FORTEO [Suspect]
     Active Substance: TERIPARATIDE
     Dates: start: 200406, end: 200408
  3. MSIR [Concomitant]
     Active Substance: MORPHINE SULFATE
     Indication: BREAKTHROUGH PAIN
     Dosage: UNK, DAILY (1/D)
  4. ACTONEL [Concomitant]
     Active Substance: RISEDRONATE SODIUM
  5. CLONAPIN [Concomitant]
     Active Substance: CLONAZEPAM
     Dosage: UNK, EACH EVENING
  6. FORTEO [Suspect]
     Active Substance: TERIPARATIDE
     Dates: start: 200610, end: 200808
  7. AVINZA [Concomitant]
     Active Substance: MORPHINE SULFATE
     Indication: PAIN
     Dosage: UNK, EACH EVENING

REACTIONS (1)
  - Malaise [Unknown]
